FAERS Safety Report 8444835-7 (Version None)
Quarter: 2012Q2

REPORT INFORMATION
  Report Type: 
  Country: None (occurrence: None)
  Receive Date: 20120618
  Receipt Date: 20120612
  Transmission Date: 20120825
  Serious: Yes (Life-Threatening, Hospitalization, Other)
  Sender: FDA-Public Use
  Company Number: PHHY2012CA042250

PATIENT
  Sex: Male

DRUGS (3)
  1. GILENYA [Suspect]
     Indication: RELAPSING-REMITTING MULTIPLE SCLEROSIS
     Dosage: 0.5 MG, DAILY
     Route: 048
     Dates: start: 20111110, end: 20120516
  2. VITAMIN D [Concomitant]
     Dosage: 4000 IU, DAILY
  3. IMODIUM [Concomitant]
     Dosage: 2 MG, DAILY
     Route: 048

REACTIONS (9)
  - ASPARTATE AMINOTRANSFERASE INCREASED [None]
  - MYOCARDIAL INFARCTION [None]
  - CHEST DISCOMFORT [None]
  - MULTIPLE SCLEROSIS RELAPSE [None]
  - TROPONIN T INCREASED [None]
  - ALANINE AMINOTRANSFERASE INCREASED [None]
  - HYPOAESTHESIA [None]
  - FATIGUE [None]
  - CHEST PAIN [None]
